FAERS Safety Report 24647064 (Version 18)
Quarter: 2025Q4

REPORT INFORMATION
  Report Type: Spontaneous
  Country: CA (occurrence: CA)
  Receive Date: 20241121
  Receipt Date: 20251023
  Transmission Date: 20260118
  Serious: Yes (Hospitalization, Other)
  Sender: PFIZER
  Company Number: CA-PFIZER INC-PV202400149732

PATIENT
  Age: 86 Year
  Sex: Female
  Weight: 66.3 kg

DRUGS (22)
  1. TRAZIMERA [Suspect]
     Active Substance: TRASTUZUMAB-QYYP
     Indication: Breast cancer
     Dosage: 530.4 MG, EVERY 3 WEEKS, (8MG/KG LOADING, THEN 6MG/KG MAINTENANCE Q3WEEKS)
     Route: 042
     Dates: start: 20241114
  2. TRAZIMERA [Suspect]
     Active Substance: TRASTUZUMAB-QYYP
     Dosage: 8MG/KG LOADING, THEN 6MG/KG MAINTENANCE Q3WEEKS
     Route: 042
     Dates: start: 20241114
  3. TRAZIMERA [Suspect]
     Active Substance: TRASTUZUMAB-QYYP
     Dosage: 8MG/KG LOADING, THEN 6MG/KG MAINTENANCE Q3WEEKS
     Route: 042
     Dates: start: 20241205, end: 20241205
  4. TRAZIMERA [Suspect]
     Active Substance: TRASTUZUMAB-QYYP
     Dosage: 390 MG EVERY 3 WEEKS (Q 3 WEEKS)
     Route: 042
     Dates: start: 20241230, end: 20241230
  5. TRAZIMERA [Suspect]
     Active Substance: TRASTUZUMAB-QYYP
     Dosage: 408 MG, EVERY 3 WEEKS
     Route: 042
     Dates: start: 20250120, end: 20250120
  6. TRAZIMERA [Suspect]
     Active Substance: TRASTUZUMAB-QYYP
     Dosage: 414MG/6MG PER KG; Q3WEEKS
     Route: 042
     Dates: start: 20250210, end: 20250210
  7. TRAZIMERA [Suspect]
     Active Substance: TRASTUZUMAB-QYYP
     Dosage: 408 MG /6MG/KG; Q3WEEKS
     Route: 042
     Dates: start: 20250303, end: 20250303
  8. TRAZIMERA [Suspect]
     Active Substance: TRASTUZUMAB-QYYP
     Dosage: 408 MG, EVERY (Q) 3 WEEKS
     Route: 042
     Dates: start: 20250324
  9. TRAZIMERA [Suspect]
     Active Substance: TRASTUZUMAB-QYYP
     Dosage: 408 MG, EVERY (Q) 3 WEEKS
     Route: 042
     Dates: start: 20250414, end: 20250414
  10. TRAZIMERA [Suspect]
     Active Substance: TRASTUZUMAB-QYYP
     Dosage: 414 MG, EVERY (Q) 3 WEEKS
     Route: 042
     Dates: start: 20250506, end: 20250506
  11. TRAZIMERA [Suspect]
     Active Substance: TRASTUZUMAB-QYYP
     Dosage: 414 MG, EVERY (Q) 3 WEEKS
     Route: 042
     Dates: start: 20250527, end: 20250527
  12. TRAZIMERA [Suspect]
     Active Substance: TRASTUZUMAB-QYYP
     Dosage: 414 MG, EVERY (Q) 3 WEEKS
     Route: 042
     Dates: start: 20250617, end: 20250617
  13. TRAZIMERA [Suspect]
     Active Substance: TRASTUZUMAB-QYYP
     Dosage: 414 MG, EVERY (Q) 3 WEEKS
     Route: 042
     Dates: start: 20250708, end: 20250708
  14. TRAZIMERA [Suspect]
     Active Substance: TRASTUZUMAB-QYYP
     Dosage: 414 MG, EVERY (Q) 3 WEEKS
     Route: 042
     Dates: start: 20250729
  15. TRAZIMERA [Suspect]
     Active Substance: TRASTUZUMAB-QYYP
     Dosage: 414 MG, EVERY (Q) 3 WEEKS CYCLE#14 INFUSION#14
     Route: 042
     Dates: start: 20250819
  16. TRAZIMERA [Suspect]
     Active Substance: TRASTUZUMAB-QYYP
     Dosage: 414 MG, EVERY (Q) 3 WEEKS CYCLE#15 INFUSION#15 (6MG/KG)
     Route: 042
     Dates: start: 20250909
  17. TRAZIMERA [Suspect]
     Active Substance: TRASTUZUMAB-QYYP
     Dosage: 414 MG, EVERY Q 3 WEEKS CYCLE#16
     Route: 042
     Dates: start: 20250930
  18. TRAZIMERA [Suspect]
     Active Substance: TRASTUZUMAB-QYYP
     Dosage: 414 MG, EVERY Q 3 WEEK
     Route: 042
     Dates: start: 20251021
  19. BISOPROLOL [Concomitant]
     Active Substance: BISOPROLOL
     Dosage: 5 MG, 1X/DAY
     Route: 048
  20. LETROZOLE [Concomitant]
     Active Substance: LETROZOLE
     Indication: Breast cancer female
     Dosage: 2.5 MG, 1X/DAY
     Route: 048
  21. SODIUM CHLORIDE [Concomitant]
     Active Substance: SODIUM CHLORIDE
     Dosage: UNK
     Dates: start: 20241230, end: 20241230
  22. RIVAROXABAN [Concomitant]
     Active Substance: RIVAROXABAN
     Dosage: 15 MG, 1X/DAY
     Route: 048

REACTIONS (7)
  - Cardiac failure [Unknown]
  - Blood pressure systolic increased [Not Recovered/Not Resolved]
  - Heart rate decreased [Not Recovered/Not Resolved]
  - Lymphadenopathy [Recovering/Resolving]
  - Postoperative wound infection [Recovering/Resolving]
  - Blood pressure fluctuation [Not Recovered/Not Resolved]
  - Blood pressure diastolic decreased [Unknown]

NARRATIVE: CASE EVENT DATE: 20241114
